FAERS Safety Report 5484231-8 (Version None)
Quarter: 2007Q4

REPORT INFORMATION
  Report Type: 
  Country: None (occurrence: None)
  Receive Date: 20071009
  Receipt Date: 20070925
  Transmission Date: 20080405
  Serious: Yes (Death)
  Sender: FDA-Public Use
  Company Number: S07-GRC-05340-01

PATIENT
  Age: 75 Year
  Sex: Male

DRUGS (3)
  1. ESCITALOPRAM [Suspect]
     Dosage: 20 MG QD PO
     Route: 048
     Dates: start: 20070615, end: 20070908
  2. REMERON [Concomitant]
  3. STEDON (DIAZEPAM) [Concomitant]

REACTIONS (2)
  - CORONARY ARTERY DISEASE [None]
  - MYOCARDIAL INFARCTION [None]
